FAERS Safety Report 9136168 (Version 1)
Quarter: 2013Q1

REPORT INFORMATION
  Report Type: Spontaneous
  Country: US (occurrence: US)
  Receive Date: 20130304
  Receipt Date: 20130304
  Transmission Date: 20140127
  Serious: Yes (Other)
  Sender: FDA-Public Use
  Company Number: US-GLAXOSMITHKLINE-A1005117A

PATIENT
  Age: 66 Year
  Sex: Male
  Weight: 92.7 kg

DRUGS (1)
  1. HORIZANT [Suspect]
     Indication: RESTLESS LEGS SYNDROME
     Dosage: 600MG PER DAY
     Route: 048
     Dates: start: 20120723, end: 20120727

REACTIONS (12)
  - Pneumonia [Not Recovered/Not Resolved]
  - Pulmonary oedema [Unknown]
  - Eyelid disorder [Unknown]
  - Chest discomfort [Unknown]
  - Dyspnoea [Unknown]
  - Oedema [Unknown]
  - Cough [Unknown]
  - Non-cardiac chest pain [Unknown]
  - Haemoptysis [Unknown]
  - Swelling face [Unknown]
  - Laryngitis [Unknown]
  - Nasal obstruction [Unknown]
